FAERS Safety Report 22228903 (Version 1)
Quarter: 2023Q2

REPORT INFORMATION
  Report Type: Spontaneous
  Country: US (occurrence: None)
  Receive Date: 20230418
  Receipt Date: 20230418
  Transmission Date: 20230722
  Serious: Yes (Other)
  Sender: FDA-Public Use
  Company Number: None

PATIENT
  Age: 71 Year
  Sex: Male

DRUGS (17)
  1. AMBRISENTAN [Suspect]
     Active Substance: AMBRISENTAN
     Indication: Pulmonary arterial hypertension
     Dosage: FREQUENCY : DAILY;?
     Route: 048
     Dates: start: 20220617
  2. AMBRISENTAN [Suspect]
     Active Substance: AMBRISENTAN
     Indication: Heritable pulmonary arterial hypertension
  3. SILDENAFIL [Concomitant]
     Active Substance: SILDENAFIL
  4. OMEPRAZOLE [Concomitant]
     Active Substance: OMEPRAZOLE
  5. VITAMIN D3 [Concomitant]
     Active Substance: CHOLECALCIFEROL
  6. SENNA [Concomitant]
     Active Substance: SENNA LEAF\SENNOSIDES\SENNOSIDES A AND B
  7. IBUPROFEN [Concomitant]
     Active Substance: IBUPROFEN
  8. ALBUTEROL SULFATE [Concomitant]
     Active Substance: ALBUTEROL SULFATE
  9. ATORVASTATIN [Concomitant]
     Active Substance: ATORVASTATIN
  10. FUROSEMIDE [Concomitant]
     Active Substance: FUROSEMIDE
  11. Eplarenone [Concomitant]
  12. FERROUS SULFATE [Concomitant]
     Active Substance: FERROUS SULFATE
  13. ASPIRIN [Concomitant]
     Active Substance: ASPIRIN
  14. IRON DEXTRAN [Concomitant]
     Active Substance: IRON DEXTRAN
  15. VENOFER [Concomitant]
     Active Substance: IRON SUCROSE
  16. TYLENOL [Concomitant]
     Active Substance: ACETAMINOPHEN
  17. MEDROL [Concomitant]
     Active Substance: METHYLPREDNISOLONE

REACTIONS (1)
  - Anaemia [None]

NARRATIVE: CASE EVENT DATE: 20230323
